FAERS Safety Report 11611542 (Version 4)
Quarter: 2016Q3

REPORT INFORMATION
  Report Type: Spontaneous
  Country: JP (occurrence: JP)
  Receive Date: 20151008
  Receipt Date: 20160809
  Transmission Date: 20161109
  Serious: Yes (Other)
  Sender: FDA-Public Use
  Company Number: JP-PFIZER INC-2015331433

PATIENT
  Age: 78 Year
  Sex: Female
  Weight: 54.6 kg

DRUGS (2)
  1. CELECOX [Suspect]
     Active Substance: CELECOXIB
     Indication: BACK PAIN
     Dosage: 1 DF, 2X/DAY
     Route: 048
     Dates: start: 20150930, end: 20151001
  2. MUCOSTA [Suspect]
     Active Substance: REBAMIPIDE
     Indication: ABDOMINAL PAIN UPPER
     Dosage: 1 DF, 2X/DAY
     Route: 048
     Dates: start: 20150930, end: 20151001

REACTIONS (3)
  - Hallucination [Recovered/Resolved]
  - Aggression [Recovered/Resolved]
  - Delirium [Recovering/Resolving]

NARRATIVE: CASE EVENT DATE: 20150930
